FAERS Safety Report 12422710 (Version 1)
Quarter: 2016Q2

REPORT INFORMATION
  Report Type: Spontaneous
  Country: HR (occurrence: HR)
  Receive Date: 20160601
  Receipt Date: 20160601
  Transmission Date: 20160815
  Serious: Yes (Other)
  Sender: FDA-Public Use
  Company Number: HR-ASTRAZENECA-2016SE55610

PATIENT
  Age: 843 Month
  Sex: Male
  Weight: 80 kg

DRUGS (8)
  1. AZOPT [Concomitant]
     Active Substance: BRINZOLAMIDE
     Route: 047
  2. AGLURAB [Concomitant]
     Indication: DIABETES MELLITUS
     Dosage: 850.0MG UNKNOWN
     Route: 048
  3. GLICLADA [Concomitant]
     Active Substance: GLICLAZIDE
     Indication: DIABETES MELLITUS
     Route: 048
  4. KLAVAX BID [Concomitant]
     Dosage: 1.0DF UNKNOWN
     Route: 048
  5. RAMIPRIL. [Concomitant]
     Active Substance: RAMIPRIL
     Indication: HYPERTENSION
     Dosage: 1.0DF UNKNOWN
     Route: 048
  6. BYDUREON [Suspect]
     Active Substance: EXENATIDE
     Indication: DIABETES MELLITUS
     Route: 058
     Dates: start: 20160412, end: 201605
  7. DICLAC DUO [Concomitant]
     Dosage: 75.0MG UNKNOWN
     Route: 048
  8. LUMIGAN [Concomitant]
     Active Substance: BIMATOPROST
     Route: 047

REACTIONS (1)
  - Nodule [Not Recovered/Not Resolved]

NARRATIVE: CASE EVENT DATE: 201605
